FAERS Safety Report 24811373 (Version 1)
Quarter: 2025Q1

REPORT INFORMATION
  Report Type: Spontaneous
  Country: US (occurrence: US)
  Receive Date: 20250106
  Receipt Date: 20250106
  Transmission Date: 20250408
  Serious: Yes (Death, Other)
  Sender: PROCTER AND GAMBLE
  Company Number: US-PROCTER+GAMBLE-GS18130903

PATIENT

DRUGS (1)
  1. DIPHENHYDRAMINE HYDROCHLORIDE [Suspect]
     Active Substance: DIPHENHYDRAMINE HYDROCHLORIDE
     Dosage: 200, 25MG TABLETS
     Route: 064

REACTIONS (4)
  - Foetal death [Fatal]
  - Ultrasound foetal abnormal [Fatal]
  - Agonal rhythm [Fatal]
  - Foetal exposure during pregnancy [Fatal]
